FAERS Safety Report 9254955 (Version 1)
Quarter: 2013Q2

REPORT INFORMATION
  Report Type: Spontaneous
  Country: FR (occurrence: FR)
  Receive Date: 20130425
  Receipt Date: 20130425
  Transmission Date: 20140414
  Serious: Yes (Hospitalization)
  Sender: FDA-Public Use
  Company Number: FR-JNJFOC-20130413752

PATIENT
  Age: 39 Year
  Sex: Male

DRUGS (4)
  1. IXPRIM [Suspect]
     Indication: PRODUCT USED FOR UNKNOWN INDICATION
     Route: 048
     Dates: start: 20130402, end: 20130402
  2. LANTUS [Concomitant]
     Route: 058
  3. NOVORAPID [Concomitant]
     Indication: PRODUCT USED FOR UNKNOWN INDICATION
     Route: 058
  4. LYRICA [Concomitant]
     Route: 048

REACTIONS (1)
  - Epilepsy [Recovered/Resolved]
